FAERS Safety Report 7764733-1 (Version None)
Quarter: 2011Q3

REPORT INFORMATION
  Report Type: 
  Country: None (occurrence: None)
  Receive Date: 20110921
  Receipt Date: 20110914
  Transmission Date: 20111222
  Serious: Yes (Other)
  Sender: FDA-Public Use
  Company Number: JP-PFIZER INC-2011216444

PATIENT
  Age: 66 Year
  Sex: Male

DRUGS (5)
  1. MEROPENEM [Suspect]
     Indication: GRAFT INFECTION
     Route: 065
  2. LINEZOLID [Suspect]
     Indication: GRAFT INFECTION
     Route: 065
  3. RIFAMPICIN [Concomitant]
     Indication: PULMONARY TUBERCULOSIS
     Dosage: UNK
     Route: 065
  4. RIFAMPICIN [Concomitant]
     Dosage: UNK
  5. CLINDAMYCIN PHOSPHATE [Suspect]
     Indication: GRAFT INFECTION
     Route: 065

REACTIONS (1)
  - BONE MARROW FAILURE [None]
